FAERS Safety Report 9579364 (Version 2)
Quarter: 2013Q4

REPORT INFORMATION
  Report Type: Spontaneous
  Country: US (occurrence: US)
  Receive Date: 20131001
  Receipt Date: 20131001
  Transmission Date: 20140711
  Serious: No
  Sender: FDA-Public Use
  Company Number: US-AMGEN-USASP2013013641

PATIENT
  Age: 31 Year
  Sex: Male
  Weight: 97.51 kg

DRUGS (4)
  1. ENBREL [Suspect]
     Indication: PRODUCT USED FOR UNKNOWN INDICATION
     Dosage: 50 MG, QWK
     Route: 058
  2. INDOMETHACIN                       /00003801/ [Concomitant]
     Dosage: 75 MG, SR
  3. TYLENOL                            /00020001/ [Concomitant]
     Dosage: 500 MG, UNK
  4. ADVIL                              /00044201/ [Concomitant]
     Dosage: 200 MG, UNK

REACTIONS (3)
  - Ear infection [Unknown]
  - Influenza [Unknown]
  - Labyrinthitis [Unknown]
